FAERS Safety Report 7188592-3 (Version None)
Quarter: 2010Q4

REPORT INFORMATION
  Report Type: 
  Country: None (occurrence: None)
  Receive Date: 20101222
  Receipt Date: 20100723
  Transmission Date: 20110411
  Serious: No
  Sender: FDA-Public Use
  Company Number: US-AMGEN-KDL426774

PATIENT

DRUGS (1)
  1. ENBREL [Suspect]
     Indication: RHEUMATOID ARTHRITIS
     Dosage: 25 MG, 2 TIMES/WK
     Route: 058

REACTIONS (6)
  - BENIGN LUNG NEOPLASM [None]
  - BENIGN NEOPLASM OF SKIN [None]
  - CONTUSION [None]
  - RASH PAPULAR [None]
  - RHEUMATOID ARTHRITIS [None]
  - SCAR [None]
